FAERS Safety Report 11838387 (Version 1)
Quarter: 2015Q4

REPORT INFORMATION
  Report Type: Spontaneous
  Country: GB (occurrence: GB)
  Receive Date: 20151215
  Receipt Date: 20151215
  Transmission Date: 20160305
  Serious: Yes (Other)
  Sender: FDA-Public Use
  Company Number: PHHY2015GB160017

PATIENT
  Age: 33 Year
  Sex: Female
  Weight: 58.6 kg

DRUGS (3)
  1. IBUPROFEN. [Concomitant]
     Active Substance: IBUPROFEN
     Indication: PRODUCT USED FOR UNKNOWN INDICATION
     Route: 065
  2. PARACETAMOL [Concomitant]
     Active Substance: ACETAMINOPHEN
     Indication: PRODUCT USED FOR UNKNOWN INDICATION
     Route: 065
  3. CODEINE PHOSPHATE [Suspect]
     Active Substance: CODEINE PHOSPHATE
     Indication: BACK PAIN
     Dosage: 30 MG, QID
     Route: 048
     Dates: start: 20151124, end: 20151125

REACTIONS (6)
  - Constipation [Not Recovered/Not Resolved]
  - Abdominal distension [Recovering/Resolving]
  - Nausea [Recovering/Resolving]
  - Oropharyngeal pain [Not Recovered/Not Resolved]
  - Abdominal pain [Recovering/Resolving]
  - Epistaxis [Recovered/Resolved]

NARRATIVE: CASE EVENT DATE: 20151125
